FAERS Safety Report 9696856 (Version 1)
Quarter: 2013Q4

REPORT INFORMATION
  Report Type: Spontaneous
  Country: US (occurrence: US)
  Receive Date: 20131119
  Receipt Date: 20131119
  Transmission Date: 20140711
  Serious: No
  Sender: FDA-Public Use
  Company Number: US-GILEAD-2007-0013611

PATIENT
  Sex: Female

DRUGS (7)
  1. LETAIRIS [Suspect]
     Dates: start: 20070803
  2. REVATIO [Concomitant]
     Route: 048
     Dates: start: 20070101
  3. FUROSEMIDE [Concomitant]
     Route: 048
     Dates: start: 20070101
  4. ALBUTEROL [Concomitant]
     Route: 048
     Dates: start: 20070101
  5. BENICAR [Concomitant]
     Route: 048
     Dates: start: 20070101
  6. POTASSIUM [Concomitant]
     Route: 048
     Dates: start: 20070101
  7. PROTONIX [Concomitant]
     Route: 048
     Dates: start: 20070101

REACTIONS (1)
  - Local swelling [None]
